FAERS Safety Report 12789411 (Version 6)
Quarter: 2016Q4

REPORT INFORMATION
  Report Type: Spontaneous
  Country: US (occurrence: US)
  Receive Date: 20160928
  Receipt Date: 20161109
  Transmission Date: 20170207
  Serious: Yes (Hospitalization)
  Sender: FDA-Public Use
  Company Number: US-ACTELION-A-NJ2016-142716

PATIENT
  Age: 64 Year
  Sex: Male
  Weight: 83.99 kg

DRUGS (5)
  1. LETAIRIS [Concomitant]
     Active Substance: AMBRISENTAN
  2. VELETRI [Suspect]
     Active Substance: EPOPROSTENOL
     Indication: PULMONARY HYPERTENSION
     Dosage: 12 NG/KG, PER MIN
     Route: 042
     Dates: start: 20160913
  3. COUMADIN [Concomitant]
     Active Substance: WARFARIN SODIUM
  4. REVATIO [Concomitant]
     Active Substance: SILDENAFIL CITRATE
  5. UPTRAVI [Suspect]
     Active Substance: SELEXIPAG
     Indication: PULMONARY HYPERTENSION
     Dosage: 200 MCG, BID
     Route: 048
     Dates: start: 20160802

REACTIONS (11)
  - Hypoxia [Unknown]
  - Cardiac failure [Unknown]
  - Fluid retention [Unknown]
  - Pain in extremity [Unknown]
  - Pulmonary arterial hypertension [Unknown]
  - Disease progression [Unknown]
  - Asthenia [Unknown]
  - Dizziness [Unknown]
  - Pain in jaw [Unknown]
  - Dyspnoea [Unknown]
  - Hypotension [Unknown]
